FAERS Safety Report 9709383 (Version 3)
Quarter: 2013Q4

REPORT INFORMATION
  Report Type: Spontaneous
  Country: PL (occurrence: PL)
  Receive Date: 20131126
  Receipt Date: 20131202
  Transmission Date: 20140711
  Serious: Yes (Hospitalization, Other)
  Sender: FDA-Public Use
  Company Number: PL-ROCHE-1256224

PATIENT
  Age: 37 Year
  Sex: Female

DRUGS (19)
  1. MABTHERA [Suspect]
     Indication: DIFFUSE LARGE B-CELL LYMPHOMA
     Route: 065
     Dates: start: 20120828
  2. MABTHERA [Suspect]
     Route: 065
     Dates: start: 20120919
  3. CYCLOPHOSPHAMIDE [Concomitant]
     Indication: DIFFUSE LARGE B-CELL LYMPHOMA
     Route: 065
     Dates: start: 20120919
  4. CYCLOPHOSPHAMIDE [Concomitant]
     Route: 065
     Dates: start: 20120809
  5. CYCLOPHOSPHAMIDE [Concomitant]
     Route: 065
     Dates: start: 20120828
  6. VINCRISTINE [Concomitant]
     Indication: DIFFUSE LARGE B-CELL LYMPHOMA
     Route: 065
     Dates: start: 20120809
  7. VINCRISTINE [Concomitant]
     Route: 065
     Dates: start: 20120828
  8. VINCRISTINE [Concomitant]
     Route: 065
     Dates: start: 20120919
  9. DOXORUBICIN [Concomitant]
     Indication: DIFFUSE LARGE B-CELL LYMPHOMA
     Route: 065
     Dates: start: 20120828
  10. DOXORUBICIN [Concomitant]
     Route: 065
     Dates: start: 20120919
  11. PREDNISONE [Concomitant]
     Indication: DIFFUSE LARGE B-CELL LYMPHOMA
     Route: 065
     Dates: start: 20120809
  12. PREDNISONE [Concomitant]
     Route: 065
     Dates: start: 20120828
  13. PREDNISONE [Concomitant]
     Route: 065
     Dates: start: 20120919
  14. EUTHYROX 50 [Concomitant]
  15. MILURIT [Concomitant]
  16. NEULASTA [Concomitant]
     Dosage: 24 H-28 H
     Route: 058
  17. DEXAVEN (DEXAMETHASONE SODIUM PHOSPHATE) [Concomitant]
  18. CLEXANE [Concomitant]
  19. FUROSEMIDE [Concomitant]

REACTIONS (11)
  - Interstitial lung disease [Unknown]
  - Neutropenia [Recovering/Resolving]
  - Anaemia [Unknown]
  - Respiratory failure [Recovering/Resolving]
  - Pneumonitis [Recovering/Resolving]
  - Pneumonitis [Recovered/Resolved]
  - Sarcoidosis [Unknown]
  - Urinary tract infection [Recovered/Resolved]
  - Pyrexia [Recovered/Resolved]
  - Lividity [Unknown]
  - Stomatitis [Unknown]
